FAERS Safety Report 9135330 (Version 1)
Quarter: 2013Q1

REPORT INFORMATION
  Report Type: Spontaneous
  Country: SE (occurrence: SE)
  Receive Date: 20130304
  Receipt Date: 20130304
  Transmission Date: 20140127
  Serious: Yes (Other)
  Sender: FDA-Public Use
  Company Number: SE-MYLANLABS-2013S1003992

PATIENT
  Sex: Female

DRUGS (4)
  1. PANTOPRAZOLE [Suspect]
     Indication: GASTROOESOPHAGEAL REFLUX DISEASE
     Dates: start: 2010
  2. PROBIOTIC /06395501/ [Concomitant]
     Indication: GASTROINTESTINAL MOTILITY DISORDER
  3. VITAMIN B12 [Concomitant]
     Indication: VITAMIN B12 DEFICIENCY
  4. GLYCERYLNITRAT [Concomitant]
     Indication: ANAL FISSURE

REACTIONS (5)
  - Gastrointestinal motility disorder [Unknown]
  - Syncope [Unknown]
  - Vomiting [Unknown]
  - Diarrhoea [Unknown]
  - Weight decreased [Unknown]
